FAERS Safety Report 12256955 (Version 2)
Quarter: 2017Q2

REPORT INFORMATION
  Report Type: Spontaneous
  Country: JP (occurrence: JP)
  Receive Date: 20160412
  Receipt Date: 20170417
  Transmission Date: 20170830
  Serious: Yes (Hospitalization)
  Sender: FDA-Public Use
  Company Number: JP-JNJFOC-20151022401

PATIENT
  Age: 82 Year
  Sex: Female
  Weight: 48 kg

DRUGS (9)
  1. FLUVASTATIN SODIUM. [Concomitant]
     Active Substance: FLUVASTATIN SODIUM
     Route: 048
     Dates: end: 20150709
  2. ZETIA [Concomitant]
     Active Substance: EZETIMIBE
     Dosage: BEFORE 2009
     Route: 048
     Dates: end: 20150709
  3. ESTAZOLAM. [Concomitant]
     Active Substance: ESTAZOLAM
     Dosage: START DATE : BEFORE 2009
     Route: 048
  4. SINGULAIR [Concomitant]
     Active Substance: MONTELUKAST SODIUM
     Dosage: START DATE : BEFORE 2009
     Route: 048
     Dates: end: 20151124
  5. SYMBICORT [Concomitant]
     Active Substance: BUDESONIDE\FORMOTEROL FUMARATE DIHYDRATE
     Route: 055
     Dates: start: 20121018, end: 20150817
  6. MUCOSAL-L [Concomitant]
     Dosage: START DATE: BEFORE 2009
     Route: 048
     Dates: end: 20150709
  7. LUNESTA [Concomitant]
     Active Substance: ESZOPICLONE
     Route: 048
     Dates: start: 20141117, end: 20150511
  8. NEXIUM [Concomitant]
     Active Substance: ESOMEPRAZOLE MAGNESIUM
     Route: 048
     Dates: start: 20121018
  9. CANAGLU [Suspect]
     Active Substance: CANAGLIFLOZIN
     Indication: TYPE 2 DIABETES MELLITUS
     Route: 048
     Dates: start: 20150415, end: 20151110

REACTIONS (3)
  - Synovitis [Recovering/Resolving]
  - Chondrocalcinosis pyrophosphate [Recovering/Resolving]
  - Asthma [Recovering/Resolving]

NARRATIVE: CASE EVENT DATE: 20150820
